FAERS Safety Report 9336803 (Version 1)
Quarter: 2013Q2

REPORT INFORMATION
  Report Type: Spontaneous
  Country: TW (occurrence: TW)
  Receive Date: 20130607
  Receipt Date: 20130607
  Transmission Date: 20140414
  Serious: Yes (Hospitalization)
  Sender: FDA-Public Use
  Company Number: PHHY2013TW056036

PATIENT
  Age: 61 Year
  Sex: Male

DRUGS (1)
  1. METFORMIN [Suspect]
     Dosage: OVER 20 GMS, UNK

REACTIONS (9)
  - Suicide attempt [Recovering/Resolving]
  - Altered state of consciousness [Recovered/Resolved]
  - Toxicity to various agents [Recovering/Resolving]
  - Hypotension [Recovering/Resolving]
  - Shock [Recovering/Resolving]
  - Renal failure acute [Recovering/Resolving]
  - Metabolic acidosis [Recovering/Resolving]
  - Lactic acidosis [Recovering/Resolving]
  - Blood glucose increased [Recovering/Resolving]
